FAERS Safety Report 22363618 (Version 2)
Quarter: 2023Q2

REPORT INFORMATION
  Report Type: Report from Study
  Country: TW (occurrence: TW)
  Receive Date: 20230525
  Receipt Date: 20230628
  Transmission Date: 20230722
  Serious: Yes (Hospitalization)
  Sender: FDA-Public Use
  Company Number: TW-ABBVIE-5178562

PATIENT
  Age: 46 Year
  Sex: Male

DRUGS (3)
  1. RINVOQ [Suspect]
     Active Substance: UPADACITINIB
     Indication: Rheumatoid arthritis
     Dosage: LAST ADMIN DATE: 2023
     Route: 048
     Dates: start: 20230529
  2. RINVOQ [Suspect]
     Active Substance: UPADACITINIB
     Indication: Rheumatoid arthritis
     Route: 048
     Dates: start: 20220412, end: 20230523
  3. WARFARIN [Concomitant]
     Active Substance: WARFARIN
     Indication: Rheumatoid arthritis
     Dosage: 1
     Route: 048
     Dates: start: 20230508

REACTIONS (4)
  - Thromboangiitis obliterans [Recovering/Resolving]
  - Cellulitis [Recovering/Resolving]
  - Thrombosis [Recovering/Resolving]
  - Vascular occlusion [Recovering/Resolving]

NARRATIVE: CASE EVENT DATE: 20230518
